FAERS Safety Report 4441773-1 (Version None)
Quarter: 2004Q3

REPORT INFORMATION
  Report Type: 
  Country: None (occurrence: None)
  Receive Date: 20040728
  Receipt Date: 20040507
  Transmission Date: 20050211
  Serious: No
  Sender: FDA-Public Use
  Company Number: USA040567013

PATIENT
  Age: 6 Year
  Sex: Male
  Weight: 26 kg

DRUGS (3)
  1. STRATTERA [Suspect]
     Dosage: 18 MG/1 DAY
     Dates: start: 20040505
  2. NASONEX [Concomitant]
  3. FLINTSTONES MULTIPLE VITAMINS [Concomitant]

REACTIONS (4)
  - AGITATION [None]
  - FATIGUE [None]
  - IRRITABILITY [None]
  - SOMNOLENCE [None]
